FAERS Safety Report 8094805-6 (Version None)
Quarter: 2012Q1

REPORT INFORMATION
  Report Type: 
  Country: None (occurrence: None)
  Receive Date: 20120129
  Receipt Date: 20111212
  Transmission Date: 20120608
  Serious: No
  Sender: FDA-Public Use
  Company Number: US-ABBOTT-11P-163-0882604-00

PATIENT
  Sex: Female
  Weight: 67.192 kg

DRUGS (5)
  1. PANTOPRAZOLE [Concomitant]
     Indication: PRODUCT USED FOR UNKNOWN INDICATION
  2. PENTOPRAZOL [Concomitant]
     Indication: GASTRITIS
  3. HUMIRA [Suspect]
     Indication: RHEUMATOID ARTHRITIS
     Route: 058
     Dates: start: 20111205
  4. HUMIRA [Suspect]
     Indication: PSORIATIC ARTHROPATHY
  5. PREDNISONE TAB [Concomitant]
     Indication: POLYARTHRITIS
     Dosage: PRN

REACTIONS (8)
  - RESPIRATORY TRACT CONGESTION [None]
  - UPPER RESPIRATORY TRACT INFECTION [None]
  - COUGH [None]
  - INJECTION SITE PAIN [None]
  - OROPHARYNGEAL PAIN [None]
  - TINNITUS [None]
  - PRODUCTIVE COUGH [None]
  - CHEST DISCOMFORT [None]
